FAERS Safety Report 9375676 (Version 1)
Quarter: 2013Q2

REPORT INFORMATION
  Report Type: Spontaneous
  Country: US (occurrence: US)
  Receive Date: 20130628
  Receipt Date: 20130628
  Transmission Date: 20140414
  Serious: No
  Sender: FDA-Public Use
  Company Number: US-009507513-1306USA009531

PATIENT
  Age: 73 Year
  Sex: Female

DRUGS (3)
  1. DULERA [Suspect]
     Indication: ASTHMA
     Dosage: 2 PUFF TWICE A DAY
     Route: 055
     Dates: start: 20130610
  2. DULERA [Suspect]
     Indication: CHRONIC OBSTRUCTIVE PULMONARY DISEASE
  3. LORAZEPAM [Concomitant]
     Dosage: IN THE LATE EVENING

REACTIONS (3)
  - Syncope [Not Recovered/Not Resolved]
  - Amnesia [Not Recovered/Not Resolved]
  - Incorrect dose administered [Unknown]
